FAERS Safety Report 6921500-6 (Version None)
Quarter: 2010Q3

REPORT INFORMATION
  Report Type: 
  Country: None (occurrence: None)
  Receive Date: 20100812
  Receipt Date: 20100804
  Transmission Date: 20110219
  Serious: Yes (Hospitalization)
  Sender: FDA-Public Use
  Company Number: PHHO2010SE10957

PATIENT
  Sex: Male
  Weight: 51 kg

DRUGS (3)
  1. CERTICAN [Interacting]
     Indication: HEART TRANSPLANT
     Dosage: 2 MG / DAY
     Route: 048
     Dates: start: 20100410
  2. NEORAL [Suspect]
     Indication: HEART TRANSPLANT
     Dosage: UNK
     Route: 048
     Dates: start: 20100410
  3. TETRACYCLINE [Suspect]
     Indication: ACNE
     Dosage: 300 MG
     Dates: start: 20100602, end: 20100721

REACTIONS (7)
  - ADVERSE DRUG REACTION [None]
  - ARRHYTHMIA [None]
  - DRUG INTERACTION [None]
  - EXTRASYSTOLES [None]
  - HEART TRANSPLANT REJECTION [None]
  - PALPITATIONS [None]
  - VENTRICULAR EXTRASYSTOLES [None]
